FAERS Safety Report 17072225 (Version 1)
Quarter: 2019Q4

REPORT INFORMATION
  Report Type: Spontaneous
  Country: US (occurrence: US)
  Receive Date: 20191123
  Receipt Date: 20191123
  Transmission Date: 20200122
  Serious: No
  Sender: FDA-Public Use
  Company Number: None

PATIENT
  Age: 44 Year
  Sex: Female
  Weight: 67.5 kg

DRUGS (1)
  1. ZOLPIDEM ER [Suspect]
     Active Substance: ZOLPIDEM TARTRATE
     Dosage: ?          QUANTITY:27 TABLET(S);?
     Route: 048
     Dates: start: 20191024, end: 20191123

REACTIONS (3)
  - Product substitution issue [None]
  - Restless legs syndrome [None]
  - Drug ineffective [None]

NARRATIVE: CASE EVENT DATE: 20191023
